FAERS Safety Report 15757835 (Version 1)
Quarter: 2018Q4

REPORT INFORMATION
  Report Type: Other
  Country: FR (occurrence: FR)
  Receive Date: 20181225
  Receipt Date: 20181225
  Transmission Date: 20190205
  Serious: Yes (Life-Threatening)
  Sender: FDA-Public Use
  Company Number: FR-CELLTRION INC.-2018FR024713

PATIENT

DRUGS (11)
  1. VANCOMYCINE                        /00314401/ [Suspect]
     Active Substance: VANCOMYCIN
     Indication: BONE MARROW FAILURE
     Dosage: UNK
     Route: 042
     Dates: start: 20181015, end: 20181016
  2. DOXORUBICINE                       /00330901/ [Suspect]
     Active Substance: DOXORUBICIN
     Indication: LYMPHOMA
     Dosage: 533.5 MG
     Route: 041
     Dates: start: 20100212, end: 20160728
  3. RITUXIMAB (UNKNOWN) [Suspect]
     Active Substance: RITUXIMAB
     Indication: STEM CELL TRANSPLANT
     Dosage: 600 MG, DAILY
     Route: 042
     Dates: start: 20181002, end: 20181002
  4. FLUDARABINE [Suspect]
     Active Substance: FLUDARABINE PHOSPHATE
     Indication: STEM CELL TRANSPLANT
     Dosage: 48.5 MG, DAILY
     Route: 042
     Dates: start: 20181005, end: 20181009
  5. RITUXIMAB (UNKNOWN) [Suspect]
     Active Substance: RITUXIMAB
     Dosage: 600 MG, DAILY
     Route: 042
     Dates: start: 20181018, end: 20181018
  6. ROCEPHINE [Suspect]
     Active Substance: CEFTRIAXONE SODIUM
     Indication: APLASIA
     Dosage: 1 DF, DAILY
     Route: 042
     Dates: start: 20181012, end: 20181018
  7. CICLOSPORINE [Suspect]
     Active Substance: CYCLOSPORINE
     Indication: PROPHYLAXIS AGAINST GRAFT VERSUS HOST DISEASE
     Dosage: 70 MG, DAILY
     Route: 042
     Dates: start: 20181016
  8. AMIKLIN                            /00391001/ [Suspect]
     Active Substance: AMIKACIN SULFATE
     Indication: BONE MARROW FAILURE
     Dosage: 1 DF, DAILY
     Route: 042
     Dates: start: 20181012, end: 20181017
  9. CELLCEPT [Suspect]
     Active Substance: MYCOPHENOLATE MOFETIL\MYCOPHENOLATE MOFETIL HYDROCHLORIDE
     Indication: PROPHYLAXIS AGAINST GRAFT VERSUS HOST DISEASE
     Dosage: 2000 MG, DAILY
     Route: 042
     Dates: start: 20181016
  10. FORTUM                             /00559701/ [Suspect]
     Active Substance: CEFTAZIDIME
     Indication: BONE MARROW FAILURE
     Dosage: 6 G, DAILY
     Route: 042
     Dates: start: 20181016, end: 201811
  11. ENDOXAN                            /00021101/ [Suspect]
     Active Substance: CYCLOPHOSPHAMIDE
     Indication: STEM CELL TRANSPLANT
     Dosage: UNK
     Route: 042
     Dates: start: 20181005, end: 20181016

REACTIONS (3)
  - Cardiac failure [Not Recovered/Not Resolved]
  - Cardiomyopathy [Not Recovered/Not Resolved]
  - Off label use [Unknown]

NARRATIVE: CASE EVENT DATE: 201810
